FAERS Safety Report 14794953 (Version 1)
Quarter: 2018Q2

REPORT INFORMATION
  Report Type: Spontaneous
  Country: SE (occurrence: SE)
  Receive Date: 20180423
  Receipt Date: 20180423
  Transmission Date: 20180711
  Serious: Yes (Other)
  Sender: FDA-Public Use
  Company Number: PHHY2018SE065712

PATIENT
  Sex: Female

DRUGS (1)
  1. RILATINE [Suspect]
     Active Substance: METHYLPHENIDATE HYDROCHLORIDE
     Indication: ATTENTION DEFICIT/HYPERACTIVITY DISORDER
     Dosage: UNK
     Route: 065
     Dates: start: 2009

REACTIONS (10)
  - Mental disorder [Unknown]
  - Eating disorder [Unknown]
  - Feeling abnormal [Unknown]
  - Tinnitus [Unknown]
  - Bipolar disorder [Unknown]
  - Weight decreased [Unknown]
  - Coeliac disease [Unknown]
  - Gastrointestinal disorder [Unknown]
  - Photosensitivity reaction [Unknown]
  - Anxiety [Unknown]
